FAERS Safety Report 9792897 (Version 2)
Quarter: 2015Q2

REPORT INFORMATION
  Report Type: Report from Study
  Country: US (occurrence: US)
  Receive Date: 20140102
  Receipt Date: 20150416
  Transmission Date: 20150821
  Serious: Yes (Hospitalization)
  Sender: FDA-Public Use
  Company Number: US-SANOFI-AVENTIS-2013SA049438

PATIENT
  Age: 63 Year
  Sex: Female

DRUGS (2)
  1. AUBAGIO [Suspect]
     Active Substance: TERIFLUNOMIDE
     Indication: MULTIPLE SCLEROSIS
     Route: 048
     Dates: end: 20141125
  2. AUBAGIO [Suspect]
     Active Substance: TERIFLUNOMIDE
     Indication: MULTIPLE SCLEROSIS
     Route: 048
     Dates: start: 20130201, end: 20141104

REACTIONS (10)
  - Oral pain [Not Recovered/Not Resolved]
  - Ear infection [Unknown]
  - Pain in extremity [Recovering/Resolving]
  - Oral disorder [Unknown]
  - Diarrhoea [Recovered/Resolved]
  - Oral pain [Recovering/Resolving]
  - Peripheral swelling [Not Recovered/Not Resolved]
  - Unevaluable event [Unknown]
  - Weight decreased [Unknown]
  - Hypoaesthesia [Unknown]
